FAERS Safety Report 5214429-5 (Version None)
Quarter: 2007Q1

REPORT INFORMATION
  Report Type: 
  Country: None (occurrence: None)
  Receive Date: 20070122
  Receipt Date: 20061214
  Transmission Date: 20070707
  Serious: Yes (Hospitalization)
  Sender: FDA-Public Use
  Company Number: JP-NOVOPROD-259349

PATIENT
  Age: 42 Year
  Sex: Female

DRUGS (1)
  1. NORDITROPIN SIMPLEXX [Suspect]

REACTIONS (2)
  - ACROMEGALY [None]
  - HYPERPARATHYROIDISM [None]
